FAERS Safety Report 14759897 (Version 1)
Quarter: 2018Q2

REPORT INFORMATION
  Report Type: Spontaneous
  Country: US (occurrence: US)
  Receive Date: 20180409
  Receipt Date: 20180409
  Transmission Date: 20180711
  Serious: Yes (Hospitalization)
  Sender: FDA-Public Use
  Company Number: None

PATIENT
  Age: 25 Year
  Sex: Male
  Weight: 95.4 kg

DRUGS (1)
  1. CLOZAPINE. [Suspect]
     Active Substance: CLOZAPINE
     Indication: BIPOLAR DISORDER
     Route: 048
     Dates: start: 20171109, end: 20180329

REACTIONS (1)
  - White blood cell count decreased [None]

NARRATIVE: CASE EVENT DATE: 20180329
